FAERS Safety Report 8727087 (Version 2)
Quarter: 2012Q4

REPORT INFORMATION
  Report Type: 
  Country: US (occurrence: US)
  Receive Date: 20120816
  Receipt Date: 20121008
  Transmission Date: 20130627
  Serious: Yes (Hospitalization, Other)
  Sender: FDA-Public Use
  Company Number: US-ROCHE-1101364

PATIENT
  Age: 44 Year
  Sex: Male

DRUGS (1)
  1. ACTIVASE [Suspect]
     Indication: ANGINA UNSTABLE
     Route: 065
     Dates: start: 19930802

REACTIONS (3)
  - Hearing impaired [Unknown]
  - Dizziness [Unknown]
  - Dyspnoea [Unknown]
